FAERS Safety Report 12652126 (Version 1)
Quarter: 2016Q3

REPORT INFORMATION
  Report Type: Report from Study
  Country: US (occurrence: US)
  Receive Date: 20160815
  Receipt Date: 20160815
  Transmission Date: 20161109
  Serious: Yes (Death, Life-Threatening, Hospitalization, Other)
  Sender: FDA-Public Use
  Company Number: US-GLAXOSMITHKLINE-US2016GSK116623

PATIENT
  Age: 80 Year
  Sex: Female
  Weight: 94 kg

DRUGS (26)
  1. ALBUTEROL. [Concomitant]
     Active Substance: ALBUTEROL
  2. CALCITROL [Concomitant]
     Active Substance: CALCITRIOL
  3. VALACICLOVIR HYDROCHLORIDE [Suspect]
     Active Substance: VALACYCLOVIR HYDROCHLORIDE
  4. OMEPRAZOLE. [Concomitant]
     Active Substance: OMEPRAZOLE
  5. METOPROLOL. [Concomitant]
     Active Substance: METOPROLOL
  6. LANTUS [Concomitant]
     Active Substance: INSULIN GLARGINE
  7. SYNTHROID [Concomitant]
     Active Substance: LEVOTHYROXINE SODIUM
  8. ASPIRIN. [Concomitant]
     Active Substance: ASPIRIN
  9. AMITIZA [Concomitant]
     Active Substance: LUBIPROSTONE
  10. NITROGYCERIN SUSTAINED RELEASE TABLET [Concomitant]
  11. IMURAN [Concomitant]
     Active Substance: AZATHIOPRINE
  12. PREDNISONE. [Concomitant]
     Active Substance: PREDNISONE
  13. METOCLOPRAMIDE. [Concomitant]
     Active Substance: METOCLOPRAMIDE
  14. ALDACTONE [Suspect]
     Active Substance: SPIRONOLACTONE
  15. CRESTOR [Concomitant]
     Active Substance: ROSUVASTATIN CALCIUM
  16. ARANESP [Concomitant]
     Active Substance: DARBEPOETIN ALFA
  17. LIRAGLUTIDE [Concomitant]
     Active Substance: LIRAGLUTIDE
  18. LOSARTAN. [Concomitant]
     Active Substance: LOSARTAN
  19. WARFARIN [Concomitant]
     Active Substance: WARFARIN
  20. BUMEX [Suspect]
     Active Substance: BUMETANIDE
     Indication: CARDIOVASCULAR DISORDER
     Dosage: 2 MG, UNK
     Route: 048
     Dates: start: 2010
  21. POTASSIUM [Concomitant]
     Active Substance: POTASSIUM
  22. NOVOLOG [Concomitant]
     Active Substance: INSULIN ASPART
  23. LYRICA [Concomitant]
     Active Substance: PREGABALIN
  24. TRAMADOL. [Concomitant]
     Active Substance: TRAMADOL
  25. ZOLOFT [Concomitant]
     Active Substance: SERTRALINE HYDROCHLORIDE
  26. FAMOTIDINE. [Concomitant]
     Active Substance: FAMOTIDINE

REACTIONS (1)
  - Chronic kidney disease [Fatal]

NARRATIVE: CASE EVENT DATE: 20150916
